FAERS Safety Report 12580860 (Version 1)
Quarter: 2016Q3

REPORT INFORMATION
  Report Type: Spontaneous
  Country: GB (occurrence: GB)
  Receive Date: 20160721
  Receipt Date: 20160721
  Transmission Date: 20161109
  Serious: Yes (Life-Threatening)
  Sender: FDA-Public Use
  Company Number: GB-B.I. PHARMACEUTICALS,INC./RIDGEFIELD-2016-BI-47311BI

PATIENT
  Age: 81 Year
  Sex: Female

DRUGS (11)
  1. DESLORATADINE. [Concomitant]
     Active Substance: DESLORATADINE
     Indication: DIARRHOEA
     Dosage: 5 MG
     Route: 065
  2. ATORVASTATIN [Concomitant]
     Active Substance: ATORVASTATIN
     Indication: DIARRHOEA
     Dosage: 40 MG
     Route: 065
  3. CITALOPRAM [Concomitant]
     Active Substance: CITALOPRAM HYDROBROMIDE
     Indication: DIARRHOEA
     Dosage: 10 MG
     Route: 065
  4. SIGNAL ANTI DIARRHEAL [Suspect]
     Active Substance: LOPERAMIDE
     Indication: DIARRHOEA
     Dosage: 6 MG
     Route: 065
  5. ZOPICLONE [Concomitant]
     Active Substance: ZOPICLONE
     Indication: DIARRHOEA
     Dosage: 7.5 MG
     Route: 065
  6. LEVOTHYROXINE. [Concomitant]
     Active Substance: LEVOTHYROXINE
     Indication: DIARRHOEA
     Dosage: 125 MCG
     Route: 065
  7. CLOPIDOGREL [Concomitant]
     Active Substance: CLOPIDOGREL BISULFATE
     Indication: DIARRHOEA
     Dosage: 75 MG
     Route: 065
  8. ASPIRIN. [Concomitant]
     Active Substance: ASPIRIN
     Indication: DIARRHOEA
     Dosage: 75 MG
     Route: 065
  9. BUSCO RANITIDINE [Suspect]
     Active Substance: RANITIDINE HYDROCHLORIDE
     Indication: DIARRHOEA
     Dosage: 300 MG
     Route: 065
  10. COCODAMOL [Concomitant]
     Active Substance: ACETAMINOPHEN\CODEINE PHOSPHATE
     Indication: DIARRHOEA
     Dosage: DOSAGE: 8/500 2 TABLETS
     Route: 065
  11. FOLIC ACID. [Concomitant]
     Active Substance: FOLIC ACID
     Indication: DIARRHOEA
     Dosage: 5 MG
     Route: 065

REACTIONS (3)
  - Torsade de pointes [Recovered/Resolved]
  - Ventricular extrasystoles [None]
  - Electrocardiogram QT prolonged [None]
